FAERS Safety Report 23892559 (Version 1)
Quarter: 2024Q2

REPORT INFORMATION
  Report Type: Spontaneous
  Country: US (occurrence: None)
  Receive Date: 20240524
  Receipt Date: 20240524
  Transmission Date: 20240716
  Serious: No
  Sender: FDA-Public Use
  Company Number: US-ROCHE-3510447

PATIENT
  Age: 35 Year
  Sex: Female

DRUGS (2)
  1. OCREVUS [Suspect]
     Active Substance: OCRELIZUMAB
     Indication: Relapsing-remitting multiple sclerosis
     Dosage: 300MG IV TWICE, TWO WEEK APART INITIALLY, AND THEN 600MG EVERY 6 MONTHS
     Route: 042
     Dates: start: 20231227
  2. OCREVUS [Suspect]
     Active Substance: OCRELIZUMAB
     Dosage: 300MG IV TWICE, TWO WEEK APART INITIALLY, AND THEN 600MG EVERY 6 MONTHS
     Route: 042
     Dates: start: 20240115

REACTIONS (2)
  - Lethargy [Recovered/Resolved]
  - Fatigue [Recovered/Resolved]

NARRATIVE: CASE EVENT DATE: 20240117
